FAERS Safety Report 9210296 (Version 4)
Quarter: 2014Q2

REPORT INFORMATION
  Report Type: Report from Study
  Country: AR (occurrence: AR)
  Receive Date: 20130404
  Receipt Date: 20140627
  Transmission Date: 20141212
  Serious: Yes (Other)
  Sender: FDA-Public Use
  Company Number: AR-ROCHE-1208998

PATIENT
  Sex: Female

DRUGS (2)
  1. XOLAIR [Suspect]
     Indication: DYSPNOEA
     Route: 058
     Dates: start: 2012
  2. XOLAIR [Suspect]
     Indication: ASTHMA

REACTIONS (9)
  - Osteoarthritis [Recovering/Resolving]
  - Blood pressure fluctuation [Recovering/Resolving]
  - Pneumonia [Recovering/Resolving]
  - Influenza [Recovering/Resolving]
  - Bone pain [Unknown]
  - Somnolence [Unknown]
  - Bone decalcification [Unknown]
  - Wheezing [Unknown]
  - Drug ineffective [Unknown]
